FAERS Safety Report 15926240 (Version 2)
Quarter: 2025Q3

REPORT INFORMATION
  Report Type: Spontaneous
  Country: EU (occurrence: EU)
  Receive Date: 20190206
  Receipt Date: 20250723
  Transmission Date: 20251021
  Serious: Yes (Other)
  Sender: AUROBINDO
  Company Number: EU-AUROBINDO-AUR-APL-2019-005230

PATIENT
  Age: 73 Year
  Sex: Female

DRUGS (2)
  1. FENTANYL [Suspect]
     Active Substance: FENTANYL
     Indication: Spinal anaesthesia
     Route: 008
  2. BUPIVACAINE [Suspect]
     Active Substance: BUPIVACAINE
     Indication: Spinal anaesthesia
     Route: 008

REACTIONS (6)
  - Neurotoxicity [Recovering/Resolving]
  - Cauda equina syndrome [Recovering/Resolving]
  - Urinary retention [Unknown]
  - Faecaloma [Unknown]
  - Paraparesis [Unknown]
  - Asthenia [Unknown]
